FAERS Safety Report 20686347 (Version 1)
Quarter: 2022Q2

REPORT INFORMATION
  Report Type: Spontaneous
  Country: US (occurrence: US)
  Receive Date: 20220407
  Receipt Date: 20220407
  Transmission Date: 20220721
  Serious: No
  Sender: FDA-Public Use
  Company Number: US-JAZZ-2022-US-006798

PATIENT
  Sex: Male

DRUGS (7)
  1. SUNOSI [Suspect]
     Active Substance: SOLRIAMFETOL
     Indication: Narcolepsy
     Dosage: UNK
  2. MODAFINIL [Concomitant]
     Active Substance: MODAFINIL
     Dosage: 0000
     Dates: start: 20220215
  3. CALCIUM MAGNESIUM [CALCIUM;MAGNESIUM] [Concomitant]
     Dosage: CAPLET
     Dates: start: 20191211
  4. NURTEC ODT [Concomitant]
     Active Substance: RIMEGEPANT SULFATE
  5. DEXTROMETHORPHAN [Concomitant]
     Active Substance: DEXTROMETHORPHAN
     Dosage: UNK, PRN
  6. SUNOSI [Concomitant]
     Active Substance: SOLRIAMFETOL
     Dosage: UNK
     Dates: start: 20220217
  7. TYLENOL [Concomitant]
     Active Substance: ACETAMINOPHEN

REACTIONS (1)
  - Vitamin B12 decreased [Unknown]
